FAERS Safety Report 8221570-1 (Version None)
Quarter: 2012Q1

REPORT INFORMATION
  Report Type: 
  Country: None (occurrence: None)
  Receive Date: 20120320
  Receipt Date: 20120314
  Transmission Date: 20120608
  Serious: Yes (Hospitalization)
  Sender: FDA-Public Use
  Company Number: US-ACTELION-A-NJ2011-49884

PATIENT

DRUGS (5)
  1. REVATIO [Concomitant]
  2. CALCIUM CHANNEL BLOCKERS [Concomitant]
  3. OXYGEN [Concomitant]
  4. TRACLEER [Suspect]
     Indication: PULMONARY ARTERIAL HYPERTENSION
     Dosage: UNK
     Route: 048
     Dates: start: 20070918
  5. VENTAVIS [Concomitant]
     Indication: PULMONARY ARTERIAL HYPERTENSION
     Dosage: UNK
     Route: 055
     Dates: start: 20101026, end: 20110526

REACTIONS (4)
  - PULMONARY ARTERIAL HYPERTENSION [None]
  - BREAST CYST [None]
  - DYSPNOEA [None]
  - CYST REMOVAL [None]
